FAERS Safety Report 6907646-7 (Version None)
Quarter: 2010Q3

REPORT INFORMATION
  Report Type: 
  Country: None (occurrence: None)
  Receive Date: 20100805
  Receipt Date: 20100730
  Transmission Date: 20110219
  Serious: Yes (Hospitalization)
  Sender: FDA-Public Use
  Company Number: DE-ASTRAZENECA-2010SE35879

PATIENT
  Age: 60 Year
  Sex: Female
  Weight: 88 kg

DRUGS (6)
  1. SEROQUEL [Suspect]
     Indication: SCHIZOAFFECTIVE DISORDER
     Route: 048
     Dates: start: 20100604, end: 20100612
  2. LISINOPRIL [Concomitant]
     Indication: HYPERTENSIVE ENCEPHALOPATHY
     Route: 048
  3. ASPIRIN [Concomitant]
     Route: 048
  4. ALLOPURINOL [Concomitant]
     Indication: HYPERTENSION
     Route: 048
  5. DIPIPERON [Concomitant]
     Indication: SCHIZOAFFECTIVE DISORDER
     Route: 048
     Dates: start: 20100604, end: 20100612
  6. LORAZEPAM [Concomitant]
     Indication: RESTLESSNESS

REACTIONS (1)
  - THROMBOCYTOPENIA [None]
